FAERS Safety Report 21773754 (Version 1)
Quarter: 2022Q4

REPORT INFORMATION
  Report Type: Spontaneous
  Country: US (occurrence: None)
  Receive Date: 20221222
  Receipt Date: 20221222
  Transmission Date: 20230113
  Serious: No
  Sender: FDA-Public Use
  Company Number: None

PATIENT
  Sex: Female

DRUGS (1)
  1. CIMZIA [Suspect]
     Active Substance: CERTOLIZUMAB PEGOL
     Indication: Ankylosing spondylitis
     Dosage: 200MG EVERY 2 WEEKS SUBCUTANEOUS?
     Route: 058
     Dates: start: 202108

REACTIONS (2)
  - Condition aggravated [None]
  - Drug ineffective [None]
